FAERS Safety Report 22060788 (Version 2)
Quarter: 2023Q1

REPORT INFORMATION
  Report Type: Spontaneous
  Country: US (occurrence: US)
  Receive Date: 20230303
  Receipt Date: 20230321
  Transmission Date: 20230418
  Serious: Yes (Hospitalization, Congenital Anomaly, Other)
  Sender: FDA-Public Use
  Company Number: US-PURDUE-USA-2023-0300183

PATIENT
  Sex: Male
  Weight: 3.03 kg

DRUGS (2)
  1. OXYCODONE HYDROCHLORIDE [Suspect]
     Active Substance: OXYCODONE HYDROCHLORIDE
     Indication: Product used for unknown indication
     Dosage: UNK
     Route: 064
  2. METHADONE [Suspect]
     Active Substance: METHADONE HYDROCHLORIDE
     Indication: Drug dependence
     Dosage: 30 MILLIGRAM
     Route: 064

REACTIONS (3)
  - Congenital hypothyroidism [Unknown]
  - Foetal exposure during pregnancy [Unknown]
  - Drug withdrawal syndrome neonatal [Recovered/Resolved]
